FAERS Safety Report 25763330 (Version 1)
Quarter: 2025Q3

REPORT INFORMATION
  Report Type: Spontaneous
  Country: AU (occurrence: AU)
  Receive Date: 20250905
  Receipt Date: 20250905
  Transmission Date: 20251021
  Serious: Yes (Other)
  Sender: ACCORD
  Company Number: None

PATIENT
  Age: 49 Year
  Sex: Male

DRUGS (10)
  1. MYCOPHENOLATE MOFETIL [Suspect]
     Active Substance: MYCOPHENOLATE MOFETIL
     Indication: Product used for unknown indication
  2. TACROLIMUS [Suspect]
     Active Substance: TACROLIMUS
     Indication: Product used for unknown indication
  3. ADALIMUMAB [Suspect]
     Active Substance: ADALIMUMAB
     Indication: Product used for unknown indication
  4. CANAKINUMAB [Suspect]
     Active Substance: CANAKINUMAB
     Indication: Product used for unknown indication
  5. INFLIXIMAB [Suspect]
     Active Substance: INFLIXIMAB
     Indication: Product used for unknown indication
  6. SECUKINUMAB [Suspect]
     Active Substance: SECUKINUMAB
     Indication: Product used for unknown indication
  7. USTEKINUMAB [Suspect]
     Active Substance: USTEKINUMAB
     Indication: Product used for unknown indication
  8. CYCLOSPORINE [Suspect]
     Active Substance: CYCLOSPORINE
     Indication: Product used for unknown indication
  9. METHYLPREDNISOLONE [Suspect]
     Active Substance: METHYLPREDNISOLONE
     Indication: Product used for unknown indication
  10. PREDNISOLONE [Suspect]
     Active Substance: PREDNISOLONE
     Indication: Product used for unknown indication

REACTIONS (13)
  - Pyoderma gangrenosum [Unknown]
  - Pseudomonas infection [Unknown]
  - Condition aggravated [Unknown]
  - Discharge [Unknown]
  - Drug ineffective for unapproved indication [Unknown]
  - Erythema [Unknown]
  - Oedema [Unknown]
  - Pain [Unknown]
  - Pyrexia [Unknown]
  - Skin infection [Unknown]
  - Skin warm [Unknown]
  - Tachycardia [Unknown]
  - Treatment failure [Unknown]
